FAERS Safety Report 9407156 (Version 5)
Quarter: 2013Q4

REPORT INFORMATION
  Report Type: Spontaneous
  Country: US (occurrence: US)
  Receive Date: 20130718
  Receipt Date: 20131231
  Transmission Date: 20140711
  Serious: Yes (Hospitalization, Disabling, Other)
  Sender: FDA-Public Use
  Company Number: US-009507513-1107USA03590

PATIENT
  Sex: Female

DRUGS (2)
  1. FOSAMAX [Suspect]
     Indication: OSTEOPOROSIS
     Dosage: 10 MG, QD
     Route: 048
     Dates: start: 1995, end: 2007
  2. FOSAMAX [Suspect]
     Indication: OSTEOPENIA
     Dosage: 70 MG, QW
     Route: 048

REACTIONS (41)
  - Oral infection [Unknown]
  - Jaw disorder [Not Recovered/Not Resolved]
  - Splenectomy [Unknown]
  - Osteonecrosis of jaw [Not Recovered/Not Resolved]
  - Oral disorder [Unknown]
  - Tooth injury [Unknown]
  - Tooth fracture [Unknown]
  - Oral infection [Unknown]
  - Stomatitis [Unknown]
  - Dental caries [Unknown]
  - Impaired healing [Unknown]
  - Oral disorder [Unknown]
  - Periodontal disease [Unknown]
  - Oral herpes [Unknown]
  - Impaired healing [Unknown]
  - Oral infection [Unknown]
  - Periodontitis [Unknown]
  - Gingival recession [Unknown]
  - Agitation [Unknown]
  - Emotional disorder [Unknown]
  - Tooth extraction [Unknown]
  - Agitation [Unknown]
  - Oral infection [Unknown]
  - Migraine [Unknown]
  - Tooth disorder [Unknown]
  - Lip neoplasm [Unknown]
  - Pain [Unknown]
  - Chest pain [Unknown]
  - Night sweats [Unknown]
  - Infection [Unknown]
  - Emotional distress [Unknown]
  - Gingival hypertrophy [Unknown]
  - Tongue dry [Unknown]
  - Oedema peripheral [Unknown]
  - Treatment failure [Not Recovered/Not Resolved]
  - Swollen tongue [Unknown]
  - Osteomyelitis [Not Recovered/Not Resolved]
  - Headache [Unknown]
  - Gastrooesophageal reflux disease [Unknown]
  - Musculoskeletal chest pain [Unknown]
  - Neck pain [Unknown]
